FAERS Safety Report 17849485 (Version 1)
Quarter: 2020Q2

REPORT INFORMATION
  Report Type: Spontaneous
  Country: US (occurrence: US)
  Receive Date: 20200601
  Receipt Date: 20200601
  Transmission Date: 20200714
  Serious: Yes (Hospitalization, Disabling)
  Sender: FDA-Public Use
  Company Number: None

PATIENT
  Age: 48 Year
  Sex: Female
  Weight: 40.95 kg

DRUGS (5)
  1. MULTI-MINERALS [Concomitant]
  2. PROHANCE [Suspect]
     Active Substance: GADOTERIDOL
     Indication: MAGNETIC RESONANCE IMAGING
     Route: 042
     Dates: start: 20190919, end: 20190919
  3. TUMERIC [Concomitant]
     Active Substance: HERBALS\TURMERIC
  4. KLONOPIN [Concomitant]
     Active Substance: CLONAZEPAM
  5. MULTI-VITAMIN [Concomitant]
     Active Substance: .ALPHA.-TOCOPHEROL ACETATE, DL-\ASCORBIC ACID\CYANOCOBALAMIN\FLUORIDE ION\FOLIC ACID\NIACIN\PYRIDOXINE\RIBOFLAVIN\THIAMINE\VITAMIN A\VITAMIN D

REACTIONS (21)
  - Hypoaesthesia [None]
  - Burning sensation [None]
  - Paraesthesia [None]
  - Bone disorder [None]
  - Temporomandibular joint syndrome [None]
  - Decreased appetite [None]
  - Limb discomfort [None]
  - Raynaud^s phenomenon [None]
  - Quality of life decreased [None]
  - Drug level increased [None]
  - Gadolinium deposition disease [None]
  - Dizziness [None]
  - Muscle contractions involuntary [None]
  - Tremor [None]
  - Metal poisoning [None]
  - Nausea [None]
  - Neuralgia [None]
  - Bone pain [None]
  - Fine motor skill dysfunction [None]
  - Tinnitus [None]
  - Pruritus [None]

NARRATIVE: CASE EVENT DATE: 20190919
